FAERS Safety Report 8113483-0 (Version None)
Quarter: 2012Q1

REPORT INFORMATION
  Report Type: 
  Country: None (occurrence: None)
  Receive Date: 20120203
  Receipt Date: 20120131
  Transmission Date: 20120608
  Serious: Yes (Hospitalization)
  Sender: FDA-Public Use
  Company Number: US-AMGEN-USACT2012006409

PATIENT
  Age: 70 Year
  Sex: Male

DRUGS (3)
  1. AZITHROMYCIN [Concomitant]
  2. DENOSUMAB [Suspect]
     Indication: BONE GIANT CELL TUMOUR
     Dosage: 120 MG, Q4WK
     Route: 058
     Dates: start: 20110913
  3. LOVENOX [Concomitant]

REACTIONS (1)
  - BACTERAEMIA [None]
